FAERS Safety Report 12036760 (Version 1)
Quarter: 2016Q1

REPORT INFORMATION
  Report Type: Report from Study
  Country: US (occurrence: US)
  Receive Date: 20160208
  Receipt Date: 20160208
  Transmission Date: 20160526
  Serious: No
  Sender: FDA-Public Use
  Company Number: PHHY2011US121185

PATIENT
  Sex: Male

DRUGS (32)
  1. XOLAIR [Suspect]
     Active Substance: OMALIZUMAB
     Indication: RHINITIS ALLERGIC
  2. PERCOCET [Concomitant]
     Active Substance: ACETAMINOPHEN\OXYCODONE HYDROCHLORIDE
     Indication: PAIN
     Dosage: 325 MG, 2-4 TIMES A DAY
     Route: 065
  3. FLOVENT HFA [Concomitant]
     Active Substance: FLUTICASONE PROPIONATE
     Indication: PRODUCT USED FOR UNKNOWN INDICATION
     Dosage: 220 UG, 4 SPRAYS/PUFFS, (2 IN 1 D)
     Route: 065
  4. METOLAZONE. [Concomitant]
     Active Substance: METOLAZONE
     Indication: PRODUCT USED FOR UNKNOWN INDICATION
     Dosage: 2.5 MG, (1 IN 1 D)
     Route: 048
  5. PREDNISONE. [Concomitant]
     Active Substance: PREDNISONE
     Dosage: 2 PILLS DAILY FOR 3 DAYS, 1 PILL DAILY FOR 3 DAYS (20 MG)
     Route: 065
  6. AMITRIPTYLINE HCL [Concomitant]
     Active Substance: AMITRIPTYLINE
     Indication: PRODUCT USED FOR UNKNOWN INDICATION
     Dosage: 25 MG, (1 IN 1 D) 3 TABLETS AT BED TIME
     Route: 065
  7. MIRALAX [Concomitant]
     Active Substance: POLYETHYLENE GLYCOL 3350
     Indication: PRODUCT USED FOR UNKNOWN INDICATION
     Dosage: UNK
     Route: 065
  8. CYMBALTA [Concomitant]
     Active Substance: DULOXETINE HYDROCHLORIDE
     Indication: PRODUCT USED FOR UNKNOWN INDICATION
     Dosage: 60 MG, (1 IN 1 D) AT BED TIME
     Route: 065
  9. CLINDAMYCIN PHOSPHATE. [Concomitant]
     Active Substance: CLINDAMYCIN PHOSPHATE
     Indication: PRODUCT USED FOR UNKNOWN INDICATION
     Dosage: 1 %, (1 IN 1 D)
     Route: 061
  10. ASPIRIN. [Concomitant]
     Active Substance: ASPIRIN
     Indication: PRODUCT USED FOR UNKNOWN INDICATION
     Dosage: 81 MG, (1 IN 1 D)
     Route: 048
  11. NASONEX [Concomitant]
     Active Substance: MOMETASONE FUROATE
     Indication: PRODUCT USED FOR UNKNOWN INDICATION
     Dosage: 50 UG, (1 IN 1 D)
     Route: 045
  12. MAGNESIUM OXIDE. [Concomitant]
     Active Substance: MAGNESIUM OXIDE
     Indication: PRODUCT USED FOR UNKNOWN INDICATION
     Dosage: 400 MG, (4 IN 1 D)
     Route: 065
  13. VIAGRA [Concomitant]
     Active Substance: SILDENAFIL CITRATE
     Indication: PRODUCT USED FOR UNKNOWN INDICATION
     Dosage: 100 MG, (1 IN 1 D)
     Route: 065
  14. CLONAZEPAM TABLETS, USP [Suspect]
     Active Substance: CLONAZEPAM
     Indication: ANXIETY
     Dosage: 2 MG, 2-3 IN A DAY
     Route: 065
  15. SEREVENT DISKUS [Concomitant]
     Active Substance: SALMETEROL XINAFOATE
     Indication: PRODUCT USED FOR UNKNOWN INDICATION
     Dosage: 50 UG, (2 IN 1 D),1 PUFF
     Route: 065
  16. FERROUS SULFATE [Concomitant]
     Active Substance: FERROUS SULFATE\FERROUS SULFATE, DRIED
     Indication: PRODUCT USED FOR UNKNOWN INDICATION
     Dosage: 325 MG, 3 IN 1 D
     Route: 065
  17. PREDNISONE. [Concomitant]
     Active Substance: PREDNISONE
     Dosage: 3 PILLS DAILY FOR 3 DAYS (20 MG)
     Route: 065
  18. METROGEL [Concomitant]
     Active Substance: METRONIDAZOLE
     Indication: PRODUCT USED FOR UNKNOWN INDICATION
     Dosage: 2 IN 1 D
     Route: 065
  19. NEURONTIN [Concomitant]
     Active Substance: GABAPENTIN
     Indication: PRODUCT USED FOR UNKNOWN INDICATION
     Dosage: 600 MG, (1 IN 1 D) AT BED TIME
     Route: 065
  20. OMEPRAZOLE. [Concomitant]
     Active Substance: OMEPRAZOLE
     Indication: PRODUCT USED FOR UNKNOWN INDICATION
     Dosage: 20 MG, (2 IN 1 D)
     Route: 065
  21. CLONAZEPAM TABLETS, USP [Suspect]
     Active Substance: CLONAZEPAM
     Dosage: 2 MG, 2 TO 3 TIMES PER DAY
  22. XOLAIR [Suspect]
     Active Substance: OMALIZUMAB
     Indication: ASTHMA
     Dosage: 300 MG, 1 IN 4 WEEK
     Route: 058
  23. MECLIZINE HCL [Concomitant]
     Indication: DIZZINESS
     Dosage: 12.5 MG, (3 IN 1 D)
     Route: 065
  24. DICLOFENAC SODIUM. [Concomitant]
     Active Substance: DICLOFENAC SODIUM
     Indication: PAIN
     Dosage: 75 MG, (2 IN 1 D)
     Route: 065
  25. PROAIR HFA [Concomitant]
     Active Substance: ALBUTEROL SULFATE
     Indication: PRODUCT USED FOR UNKNOWN INDICATION
     Dosage: 108 UG, (1 IN 4 HR)
     Route: 065
  26. DOXEPIN HCL [Concomitant]
     Active Substance: DOXEPIN HYDROCHLORIDE
     Indication: PRODUCT USED FOR UNKNOWN INDICATION
     Dosage: 75 MG, (1 IN 1 D) AT BED TIME
     Route: 065
  27. LASIX [Concomitant]
     Active Substance: FUROSEMIDE
     Indication: PRODUCT USED FOR UNKNOWN INDICATION
     Dosage: 40 MG, (2 IN 1 D)
     Route: 065
  28. ACCOLATE [Concomitant]
     Active Substance: ZAFIRLUKAST
     Indication: PRODUCT USED FOR UNKNOWN INDICATION
     Dosage: 20 MG, (2 IN 1 D)
     Route: 065
  29. EPIPEN [Concomitant]
     Active Substance: EPINEPHRINE
     Indication: PRODUCT USED FOR UNKNOWN INDICATION
     Dosage: 0.3 MG,(0.3 ML)
     Route: 065
  30. POTASSIUM CHLORIDE. [Concomitant]
     Active Substance: POTASSIUM CHLORIDE
     Indication: PRODUCT USED FOR UNKNOWN INDICATION
     Dosage: 20 MEQ, (3 IN 1 D)
     Route: 065
  31. PLAQUENIL [Concomitant]
     Active Substance: HYDROXYCHLOROQUINE SULFATE
     Indication: PRODUCT USED FOR UNKNOWN INDICATION
     Dosage: 200 MG, (1 IN 1 D)
     Route: 065
  32. PREDNISONE. [Concomitant]
     Active Substance: PREDNISONE
     Indication: PRODUCT USED FOR UNKNOWN INDICATION
     Dosage: 5 MG, (1 IN 1 D)
     Route: 065

REACTIONS (2)
  - Somnolence [Unknown]
  - Asthma [Unknown]
